FAERS Safety Report 21056219 (Version 1)
Quarter: 2022Q3

REPORT INFORMATION
  Report Type: Spontaneous
  Country: MY (occurrence: None)
  Receive Date: 20220708
  Receipt Date: 20220708
  Transmission Date: 20221027
  Serious: Yes (Other)
  Sender: FDA-Public Use
  Company Number: MY-ROCHE-3129963

PATIENT

DRUGS (1)
  1. POLIVY [Suspect]
     Active Substance: POLATUZUMAB VEDOTIN-PIIQ
     Indication: Product used for unknown indication
     Route: 065

REACTIONS (6)
  - Cytopenia [Unknown]
  - Lethargy [Unknown]
  - Weight decreased [Unknown]
  - Hypoaesthesia [Unknown]
  - Cachexia [Unknown]
  - Disease progression [Unknown]
